FAERS Safety Report 6668558 (Version 2)
Quarter: 2012Q4

REPORT INFORMATION
  Report Type: Report from Study
  Country: US (occurrence: US)
  Receive Date: 20080616
  Receipt Date: 20121212
  Transmission Date: 20130627
  Serious: Yes (Hospitalization)
  Sender: FDA-Public Use
  Company Number: US-JNJFOC-20080601921

PATIENT
  Age: 59 Year
  Sex: Male
  Weight: 107 kg

DRUGS (6)
  1. DOXORUBICIN HYDROCHLORIDE (DOXIL) [Suspect]
     Indication: MULTIPLE MYELOMA
     Dosage: cycle 2
     Route: 042
     Dates: start: 20080512, end: 20080512
  2. REVLIMID [Suspect]
     Indication: MULTIPLE MYELOMA
     Route: 048
     Dates: start: 20080512
  3. DEXAMETHASONE [Suspect]
     Indication: MULTIPLE MYELOMA
     Route: 048
     Dates: start: 20080512, end: 20080515
  4. FLUOROQUINOLONES [Concomitant]
     Indication: PROPHYLAXIS
     Route: 065
  5. ANTITHROMBOTIC AGENTS [Concomitant]
     Indication: THROMBOSIS PROPHYLAXIS
     Route: 065
  6. ACYCLOVIR [Concomitant]
     Indication: PROPHYLAXIS
     Route: 065

REACTIONS (4)
  - Cough [Recovered/Resolved]
  - Oropharyngeal pain [Unknown]
  - Hypokalaemia [Recovered/Resolved]
  - Neutropenia [Recovered/Resolved]
